FAERS Safety Report 7960932-4 (Version None)
Quarter: 2011Q4

REPORT INFORMATION
  Report Type: 
  Country: None (occurrence: None)
  Receive Date: 20111202
  Receipt Date: 20111122
  Transmission Date: 20120403
  Serious: Yes (Death, Hospitalization)
  Sender: FDA-Public Use
  Company Number: 1116203

PATIENT
  Age: 77 Year
  Sex: Female
  Weight: 55 kg

DRUGS (10)
  1. ALENDRONATE SODIUM [Concomitant]
  2. (ADCAL D3) [Concomitant]
  3. (HYDROXYCHLOROQUINE) [Concomitant]
  4. METFORMIN HCL [Concomitant]
  5. SIMVASTATIN [Concomitant]
  6. METHOTREXATE [Suspect]
     Indication: RHEUMATOID ARTHRITIS
     Dosage: 20 MG MILLIGRAM(S), SUBCUTANEOUS
     Route: 058
     Dates: end: 20111103
  7. (DENOSUMAB) [Suspect]
     Indication: OSTEOPENIA
     Dosage: 60 MG MILLIGRAM(S), SUBCUTANEOUS
     Route: 058
     Dates: start: 20110812
  8. FOLIC ACID [Concomitant]
  9. OMEPRAZOLE [Concomitant]
  10. RAMIPRIL [Concomitant]

REACTIONS (5)
  - HAEMOGLOBIN DECREASED [None]
  - PLATELET COUNT DECREASED [None]
  - LOWER RESPIRATORY TRACT INFECTION [None]
  - NEUTROPENIA [None]
  - WHITE BLOOD CELL COUNT DECREASED [None]
